APPROVED DRUG PRODUCT: DILTIAZEM HYDROCHLORIDE
Active Ingredient: DILTIAZEM HYDROCHLORIDE
Strength: 420MG
Dosage Form/Route: TABLET, EXTENDED RELEASE;ORAL
Application: A077686 | Product #001 | TE Code: AB
Applicant: ACTAVIS LABORATORIES FL INC
Approved: Mar 15, 2010 | RLD: No | RS: No | Type: RX